FAERS Safety Report 20973405 (Version 1)
Quarter: 2022Q2

REPORT INFORMATION
  Report Type: Spontaneous
  Country: US (occurrence: US)
  Receive Date: 20220617
  Receipt Date: 20220617
  Transmission Date: 20220720
  Serious: Yes (Other)
  Sender: FDA-Public Use
  Company Number: US-UROGEN PHARMA LTD.-2022-UGN-000042

PATIENT

DRUGS (3)
  1. JELMYTO [Suspect]
     Active Substance: MITOMYCIN
     Indication: Product used for unknown indication
     Dosage: 60 MG (MILLIGRAM) ONE TIMES PER WEEK (INSTILLATION)
     Dates: start: 20220415, end: 20220415
  2. JELMYTO [Suspect]
     Active Substance: MITOMYCIN
     Dosage: 60 MG (MILLIGRAM) ONE TIMES PER WEEK (INSTILLATION)
     Dates: start: 20220422, end: 20220422
  3. JELMYTO [Suspect]
     Active Substance: MITOMYCIN
     Dosage: 10 MILLILITER (INSTILLATION)
     Dates: start: 20220513, end: 20220513

REACTIONS (1)
  - Hydronephrosis [Recovering/Resolving]

NARRATIVE: CASE EVENT DATE: 20220422
